FAERS Safety Report 7294986-8 (Version None)
Quarter: 2011Q1

REPORT INFORMATION
  Report Type: 
  Country: None (occurrence: None)
  Receive Date: 20110216
  Receipt Date: 20110211
  Transmission Date: 20110831
  Serious: No
  Sender: FDA-Public Use
  Company Number: US-JNJFOC-20110203739

PATIENT
  Sex: Female

DRUGS (2)
  1. FENTANYL-100 [Suspect]
     Indication: ILL-DEFINED DISORDER
     Route: 062
  2. DURAGESIC-50 [Suspect]
     Indication: ILL-DEFINED DISORDER
     Dosage: 75UG/HR+75UG/HR
     Route: 062

REACTIONS (2)
  - INCORRECT DOSE ADMINISTERED [None]
  - APPLICATION SITE BURN [None]
